FAERS Safety Report 4543123-9 (Version None)
Quarter: 2004Q4

REPORT INFORMATION
  Report Type: 
  Country: None (occurrence: None)
  Receive Date: 20041229
  Receipt Date: 20041215
  Transmission Date: 20050328
  Serious: Yes (Hospitalization)
  Sender: FDA-Public Use
  Company Number: 2004-122313-NL

PATIENT
  Age: 46 Year
  Sex: Male

DRUGS (4)
  1. MIRTAZAPINE [Suspect]
     Dosage: 45 MG ORAL
     Route: 048
     Dates: start: 20040914
  2. OLANZAPINE [Suspect]
     Indication: MAJOR DEPRESSION
     Dosage: 10 MG ORAL
     Route: 048
     Dates: start: 20040914, end: 20041111
  3. SULPIRIDE [Suspect]
     Indication: MAJOR DEPRESSION
     Dosage: 400 MG ORAL
     Route: 048
     Dates: start: 20041014, end: 20041020
  4. CITALOPRAM [Concomitant]

REACTIONS (4)
  - EXTRAPYRAMIDAL DISORDER [None]
  - LABILE BLOOD PRESSURE [None]
  - MAJOR DEPRESSION [None]
  - NEUROLEPTIC MALIGNANT SYNDROME [None]
